FAERS Safety Report 4882712-9 (Version None)
Quarter: 2006Q1

REPORT INFORMATION
  Report Type: 
  Country: None (occurrence: None)
  Receive Date: 20060113
  Receipt Date: 20060105
  Transmission Date: 20060701
  Serious: Yes (Other)
  Sender: FDA-Public Use
  Company Number: 2006002526

PATIENT
  Age: 74 Year
  Sex: Female
  Weight: 60.3284 kg

DRUGS (5)
  1. BENADRYL [Suspect]
     Indication: URTICARIA
     Dosage: ONE TAB, 3-4X DAILY, ORAL
     Route: 048
     Dates: start: 20051223, end: 20060104
  2. BENADRYL CREAM EXTRA STRENGTH (DIPHENHYDRAMINE, ZINC ACETATE) [Suspect]
     Indication: URTICARIA
     Dosage: 1-2X DAILY, TOPICAL
     Route: 061
     Dates: start: 20051201
  3. BENADRYL CREAM EXTRA STRENGTH (DIPHENHYDRAMINE, ZINC ACETATE) [Suspect]
  4. HYDROCHLOROTHIAZIDE [Concomitant]
  5. ATORVASTATIN CALCIUM [Concomitant]

REACTIONS (9)
  - AURICULAR SWELLING [None]
  - FEELING ABNORMAL [None]
  - FLUSHING [None]
  - OEDEMA PERIPHERAL [None]
  - PRURITUS [None]
  - SKIN EXFOLIATION [None]
  - SUNBURN [None]
  - SWELLING FACE [None]
  - URTICARIA [None]
